FAERS Safety Report 8361226-8 (Version None)
Quarter: 2012Q2

REPORT INFORMATION
  Report Type: 
  Country: None (occurrence: None)
  Receive Date: 20120515
  Receipt Date: 20110726
  Transmission Date: 20120825
  Serious: No
  Sender: FDA-Public Use
  Company Number: US-ALEXION-A201101140

PATIENT
  Sex: Male

DRUGS (5)
  1. SOLIRIS [Suspect]
     Indication: PAROXYSMAL NOCTURNAL HAEMOGLOBINURIA
     Dosage: 600 MG QW
     Route: 042
     Dates: start: 20110601
  2. SOLIRIS [Suspect]
     Dosage: 900 MG Q2W
     Route: 042
  3. LOVENOX [Concomitant]
     Indication: THROMBOSIS PROPHYLAXIS
     Dosage: UNK QD
     Route: 058
  4. FIORICET [Concomitant]
     Dosage: UNK PRN
     Route: 048
  5. VITAMIN B COMPLEX CAP [Concomitant]
     Dosage: UNK QD
     Route: 048

REACTIONS (1)
  - HAEMOLYSIS [None]
